FAERS Safety Report 9103631 (Version 8)
Quarter: 2013Q3

REPORT INFORMATION
  Report Type: Report from Study
  Country: FR (occurrence: FR)
  Receive Date: 20130218
  Receipt Date: 20130906
  Transmission Date: 20140515
  Serious: Yes (Hospitalization)
  Sender: FDA-Public Use
  Company Number: FR-ROCHE-1188763

PATIENT
  Age: 63 Year
  Sex: Male
  Weight: 88 kg

DRUGS (20)
  1. TOCILIZUMAB [Suspect]
     Indication: RHEUMATOID ARTHRITIS
     Dosage: MOST RECENT DOSE PRIOR TO SAE: 24/MAY/2012 AT A DOSE OF 35.2 ML
     Route: 042
     Dates: start: 20110912
  2. BLINDED TOCILIZUMAB [Suspect]
     Indication: RHEUMATOID ARTHRITIS
     Dosage: MOST RECENT DOSE PRIOR TO SAE: 31/AUG/2011
     Route: 058
     Dates: start: 20110323
  3. BLINDED TOCILIZUMAB [Suspect]
     Indication: RHEUMATOID ARTHRITIS
     Dosage: MOST RECENT DOSE PRIOR TO SAE: 10/AUG/2011
     Route: 042
     Dates: start: 20110323
  4. SPECIAFOLDINE [Concomitant]
     Route: 048
     Dates: start: 20110317
  5. KARDEGIC [Concomitant]
     Route: 048
     Dates: start: 2001
  6. CRESTOR [Concomitant]
     Route: 048
     Dates: start: 200907, end: 201102
  7. COVERSYL [Concomitant]
     Route: 048
     Dates: start: 200907, end: 20120820
  8. COVERSYL [Concomitant]
     Route: 048
     Dates: start: 20120821
  9. INIPOMP [Concomitant]
     Route: 048
     Dates: start: 200907
  10. IMOVANE [Concomitant]
     Route: 048
     Dates: start: 20111011, end: 20120820
  11. IMOVANE [Concomitant]
     Route: 048
     Dates: start: 20120821
  12. HEXASPRAY [Concomitant]
     Dosage: 2 SPRAY
     Route: 048
     Dates: start: 20120224
  13. LIPANTHYL [Concomitant]
     Route: 048
     Dates: start: 20120227
  14. IXPRIM [Concomitant]
     Dosage: 2 CAPSULES
     Route: 048
     Dates: start: 20120515
  15. APRANAX [Concomitant]
     Route: 048
     Dates: start: 20120525
  16. ARAVA [Concomitant]
     Route: 048
     Dates: start: 20120618
  17. DOLIPRANE [Concomitant]
     Route: 048
     Dates: start: 20120227
  18. HUMIRA [Concomitant]
     Route: 030
     Dates: start: 20120621
  19. PANTOPRAZOLE [Concomitant]
     Route: 048
     Dates: start: 20120701
  20. INEXIUM [Concomitant]
     Route: 048
     Dates: start: 20120821

REACTIONS (1)
  - Ischaemic stroke [Recovered/Resolved]
